FAERS Safety Report 12294365 (Version 1)
Quarter: 2016Q2

REPORT INFORMATION
  Report Type: Spontaneous
  Country: US (occurrence: None)
  Receive Date: 20160421
  Receipt Date: 20160421
  Transmission Date: 20160815
  Serious: Yes (Other)
  Sender: FDA-Public Use
  Company Number: None

PATIENT
  Age: 62 Year
  Sex: Female
  Weight: 56.7 kg

DRUGS (19)
  1. IRON SUCROSE IV [Concomitant]
  2. OMEGA 3 FISH OIL [Concomitant]
     Active Substance: FISH OIL\OMEGA-3 FATTY ACIDS
  3. OSPEMIFANE (OSPHENA) [Concomitant]
  4. MODAFINIL. [Suspect]
     Active Substance: MODAFINIL
  5. CLONAZEPAM. [Concomitant]
     Active Substance: CLONAZEPAM
  6. NEURONTIN [Concomitant]
     Active Substance: GABAPENTIN
  7. LEVOTHYROXINE SODIUM (LEVOXYL) [Concomitant]
  8. MODAFINIL. [Concomitant]
     Active Substance: MODAFINIL
  9. MELATONIN [Concomitant]
     Active Substance: MELATONIN
  10. MYRBETRIQ [Concomitant]
     Active Substance: MIRABEGRON
  11. TRAZODONE HYDROCHLORIDE. [Concomitant]
     Active Substance: TRAZODONE HYDROCHLORIDE
  12. ZOLEDRONIC ACID [Concomitant]
     Active Substance: ZOLEDRONIC ACID
  13. CARBIDOPA/LEVADOPA (SINEMET) [Concomitant]
  14. CARBOXYMETHYLCELLULOSE SODIUM (RETAINE MGD) [Concomitant]
  15. INCOBOTULINUMTOXIN A (XEOMIN) [Concomitant]
  16. PROVIDENT [Concomitant]
  17. CALCIUM CARBONATE (CALTRATE) [Concomitant]
  18. LINZESS [Concomitant]
     Active Substance: LINACLOTIDE
  19. PAROXETINE HCL [Concomitant]
     Active Substance: PAROXETINE HYDROCHLORIDE

REACTIONS (3)
  - Palpitations [None]
  - Dyspnoea [None]
  - Cardiac flutter [None]

NARRATIVE: CASE EVENT DATE: 20160401
